FAERS Safety Report 8219857-1 (Version None)
Quarter: 2012Q1

REPORT INFORMATION
  Report Type: 
  Country: None (occurrence: None)
  Receive Date: 20120319
  Receipt Date: 20120305
  Transmission Date: 20120608
  Serious: Yes (Other)
  Sender: FDA-Public Use
  Company Number: ES-CELGENEUS-144-21660-11102401

PATIENT
  Sex: Female

DRUGS (5)
  1. OMEPRAZOLE [Concomitant]
     Route: 065
     Dates: start: 20110927, end: 20120105
  2. DEXAMETHASONE [Concomitant]
     Dosage: 8 MILLIGRAM
     Route: 065
     Dates: start: 20110927, end: 20120105
  3. MORPHINE [Concomitant]
     Dosage: 10 MILLIGRAM
     Route: 065
     Dates: start: 20110927, end: 20120105
  4. ABRAXANE [Suspect]
     Route: 041
     Dates: start: 20110927
  5. ABRAXANE [Suspect]
     Route: 041
     Dates: start: 20110920

REACTIONS (3)
  - SKIN TOXICITY [None]
  - MUCOSAL INFLAMMATION [None]
  - GENERAL PHYSICAL HEALTH DETERIORATION [None]
